FAERS Safety Report 9014807 (Version 1)
Quarter: 2013Q1

REPORT INFORMATION
  Report Type: Spontaneous
  Country: GB (occurrence: GB)
  Receive Date: 20130115
  Receipt Date: 20130115
  Transmission Date: 20140127
  Serious: Yes (Hospitalization)
  Sender: FDA-Public Use
  Company Number: GB-UCBSA-074831

PATIENT
  Age: 64 Year
  Sex: Male
  Weight: 48 kg

DRUGS (3)
  1. CIMZIA [Suspect]
     Indication: RHEUMATOID ARTHRITIS
     Route: 058
     Dates: start: 20120626, end: 20120929
  2. PREDNISOLONE [Concomitant]
     Dosage: UNKNOWN DOSE
  3. METHOTREXATE [Concomitant]
     Dosage: UNKNOWN DOSE

REACTIONS (1)
  - Pneumonia [Recovering/Resolving]
